FAERS Safety Report 22598205 (Version 2)
Quarter: 2024Q2

REPORT INFORMATION
  Report Type: Spontaneous
  Country: US (occurrence: None)
  Receive Date: 20230614
  Receipt Date: 20240613
  Transmission Date: 20240716
  Serious: Yes (Hospitalization)
  Sender: FDA-Public Use
  Company Number: US-MDD US Operations-MDD202302-000591

PATIENT
  Age: 80 Year
  Sex: Male

DRUGS (7)
  1. APOKYN [Suspect]
     Active Substance: APOMORPHINE HYDROCHLORIDE
     Indication: Parkinson^s disease
     Dates: start: 20230209
  2. APOKYN [Suspect]
     Active Substance: APOMORPHINE HYDROCHLORIDE
     Route: 058
     Dates: start: 20230209
  3. APOKYN [Suspect]
     Active Substance: APOMORPHINE HYDROCHLORIDE
     Dosage: AS DIRECTED
     Route: 058
     Dates: start: 202302
  4. APOKYN [Suspect]
     Active Substance: APOMORPHINE HYDROCHLORIDE
     Route: 058
     Dates: start: 20240201
  5. ROPINIROLE [Concomitant]
     Active Substance: ROPINIROLE
     Dosage: NOT PROVIDED
  6. CARBIDOPA\LEVODOPA [Concomitant]
     Active Substance: CARBIDOPA\LEVODOPA
     Dosage: NOT PROVIDED
  7. LOSARTAN [Concomitant]
     Active Substance: LOSARTAN
     Dosage: NOT PROVIDED

REACTIONS (7)
  - Vomiting [Unknown]
  - Loss of consciousness [Unknown]
  - Rehabilitation therapy [Unknown]
  - Somnolence [Unknown]
  - Hallucination [Not Recovered/Not Resolved]
  - Nausea [Unknown]
  - Device defective [Unknown]

NARRATIVE: CASE EVENT DATE: 20240201
